FAERS Safety Report 10175898 (Version 1)
Quarter: 2014Q2

REPORT INFORMATION
  Report Type: Spontaneous
  Country: SN (occurrence: SN)
  Receive Date: 20140516
  Receipt Date: 20140516
  Transmission Date: 20141212
  Serious: Yes (Death, Hospitalization)
  Sender: FDA-Public Use
  Company Number: PHHY2014SN056234

PATIENT
  Age: 42 Year
  Sex: Female

DRUGS (3)
  1. GLIVEC [Suspect]
     Indication: CHRONIC MYELOID LEUKAEMIA
     Dosage: 100 MG, OF 2 TABLETS 2 TIMES
  2. GLIVEC [Suspect]
     Dosage: 600 MG, PER DAY
  3. CEFTRIAXONE [Concomitant]
     Dosage: 2 G, DAILY

REACTIONS (2)
  - Sepsis [Fatal]
  - Maternal exposure during pregnancy [Unknown]
